FAERS Safety Report 9187533 (Version 1)
Quarter: 2013Q1

REPORT INFORMATION
  Report Type: Spontaneous
  Country: KR (occurrence: KR)
  Receive Date: 20130325
  Receipt Date: 20130325
  Transmission Date: 20140127
  Serious: Yes (Other)
  Sender: FDA-Public Use
  Company Number: KR-JNJFOC-20130311790

PATIENT
  Age: 9 Month
  Sex: Male
  Weight: 9.7 kg

DRUGS (1)
  1. TYLENOL [Suspect]
     Indication: PYREXIA
     Route: 048
     Dates: start: 20130315, end: 20130315

REACTIONS (2)
  - Accidental overdose [Unknown]
  - No adverse event [None]
